FAERS Safety Report 15263558 (Version 1)
Quarter: 2018Q3

REPORT INFORMATION
  Report Type: Spontaneous
  Country: US (occurrence: US)
  Receive Date: 20180720
  Receipt Date: 20180720
  Transmission Date: 20181010
  Serious: Yes (Disabling)
  Sender: FDA-Public Use
  Company Number: None

PATIENT
  Age: 26 Year
  Sex: Female
  Weight: 74.84 kg

DRUGS (4)
  1. PROAIR HFA [Concomitant]
     Active Substance: ALBUTEROL SULFATE
  2. KETOCONAZOL [Concomitant]
     Active Substance: KETOCONAZOLE
  3. HYDROCOTISONE CREAM [Concomitant]
  4. MIRENA [Suspect]
     Active Substance: LEVONORGESTREL
     Dates: start: 20151221

REACTIONS (1)
  - Ovarian cyst [None]

NARRATIVE: CASE EVENT DATE: 20180701
